FAERS Safety Report 21534666 (Version 1)
Quarter: 2022Q4

REPORT INFORMATION
  Report Type: Spontaneous
  Country: US (occurrence: US)
  Receive Date: 20221101
  Receipt Date: 20221101
  Transmission Date: 20230113
  Serious: No
  Sender: FDA-Public Use
  Company Number: US-MIGRATION_PFIZER-2022BHV001650

PATIENT
  Age: 40 Year
  Sex: Female

DRUGS (4)
  1. NURTEC ODT [Suspect]
     Active Substance: RIMEGEPANT SULFATE
     Indication: Migraine
     Dosage: SECOND MONTH OF TREATMENT WITH NURTEC ODT, EVERY OTHER DAY FOR THE WEEK LEADING UP TO HER PERIOD
     Route: 060
     Dates: start: 202204
  2. NURTEC ODT [Suspect]
     Active Substance: RIMEGEPANT SULFATE
     Indication: Migraine
  3. VITAMIN B12 [Concomitant]
     Active Substance: CYANOCOBALAMIN
     Indication: Product used for unknown indication
     Route: 060
  4. RIZATRIPTAN [Concomitant]
     Active Substance: RIZATRIPTAN
     Indication: Migraine
     Route: 065

REACTIONS (4)
  - Skin odour abnormal [Not Recovered/Not Resolved]
  - Nervousness [Unknown]
  - Hyperhidrosis [Unknown]
  - Cyst [Unknown]

NARRATIVE: CASE EVENT DATE: 20220601
